FAERS Safety Report 25473292 (Version 1)
Quarter: 2025Q2

REPORT INFORMATION
  Report Type: Spontaneous
  Country: DE (occurrence: None)
  Receive Date: 20250624
  Receipt Date: 20250624
  Transmission Date: 20250716
  Serious: Yes (Other)
  Sender: INCYTE
  Company Number: DE-EVENT-003219

PATIENT

DRUGS (2)
  1. PEMAZYRE [Suspect]
     Active Substance: PEMIGATINIB
     Route: 065
  2. PEMAZYRE [Suspect]
     Active Substance: PEMIGATINIB
     Route: 065

REACTIONS (6)
  - Retinal deposits [Recovered/Resolved]
  - Cholestasis [Unknown]
  - Carbohydrate antigen 19-9 increased [Unknown]
  - Back pain [Unknown]
  - Hypercalcaemia [Unknown]
  - Hyperphosphataemia [Unknown]
